FAERS Safety Report 8386541-3 (Version None)
Quarter: 2012Q2

REPORT INFORMATION
  Report Type: 
  Country: None (occurrence: None)
  Receive Date: 20120525
  Receipt Date: 20110614
  Transmission Date: 20120825
  Serious: No
  Sender: FDA-Public Use
  Company Number: US-GLAXOSMITHKLINE-A0931470A

PATIENT
  Age: 50 Year
  Sex: Female

DRUGS (5)
  1. BONIVA [Concomitant]
  2. VERAMYST [Suspect]
     Indication: SINUS CONGESTION
     Dosage: 1SPR PER DAY
     Route: 045
     Dates: start: 20110526
  3. STEROIDS [Concomitant]
  4. ANTIBIOTICS [Concomitant]
  5. PROGESTERONE [Concomitant]

REACTIONS (4)
  - EYELID FUNCTION DISORDER [None]
  - OVERDOSE [None]
  - FEELING ABNORMAL [None]
  - TINNITUS [None]
